FAERS Safety Report 6683512-X (Version None)
Quarter: 2010Q2

REPORT INFORMATION
  Report Type: 
  Country: None (occurrence: None)
  Receive Date: 20100413
  Receipt Date: 20100329
  Transmission Date: 20101027
  Serious: Yes (Hospitalization)
  Sender: FDA-Public Use
  Company Number: 2010000717

PATIENT
  Age: 80 Year
  Sex: Female

DRUGS (10)
  1. ERLOTINIB (ERLOTINIB) (TABLET) (ERLOTINIB) [Suspect]
     Indication: NON-SMALL CELL LUNG CANCER
     Dosage: 100 MG, QD, ORAL
     Route: 048
     Dates: start: 20081226, end: 20100201
  2. ERLOTINIB (ERLOTINIB) (TABLET) (ERLOTINIB) [Suspect]
     Indication: NON-SMALL CELL LUNG CANCER
     Dosage: 100 MG, QD, ORAL
     Route: 048
     Dates: start: 20100215
  3. PROPAFENONE HCL [Concomitant]
  4. FLUINDIONE (FLUINDIONE) [Concomitant]
  5. TRIMETAZIDINE (TRIMETAZIDINE) [Concomitant]
  6. LEVOTHYROXINE SODIUM [Concomitant]
  7. ASPIRIN [Concomitant]
  8. IBUPROFEN [Concomitant]
  9. ZOLPIDEM TARTRATE [Concomitant]
  10. CIPRAM (CITALOPRAM HYDROCHLORIDE) [Concomitant]

REACTIONS (1)
  - OESOPHAGEAL ACHALASIA [None]
